FAERS Safety Report 13339997 (Version 2)
Quarter: 2017Q1

REPORT INFORMATION
  Report Type: Spontaneous
  Country: US (occurrence: US)
  Receive Date: 20170316
  Receipt Date: 20170330
  Transmission Date: 20170428
  Serious: Yes (Other)
  Sender: FDA-Public Use
  Company Number: US-CONCORDIA PHARMACEUTICALS INC.-GSH201703-001648

PATIENT
  Age: 58 Year
  Sex: Female

DRUGS (14)
  1. TRAMADOL. [Concomitant]
     Active Substance: TRAMADOL
     Indication: PAIN
     Dosage: EVERY 8 HOURS FOR 14 DAYS
  2. PREDNISONE. [Suspect]
     Active Substance: PREDNISONE
     Indication: SJOGREN^S SYNDROME
     Route: 065
  3. GABAPENTIN. [Concomitant]
     Active Substance: GABAPENTIN
  4. PREDNISONE. [Suspect]
     Active Substance: PREDNISONE
     Indication: RHEUMATOID ARTHRITIS
  5. RAMIPRIL. [Concomitant]
     Active Substance: RAMIPRIL
  6. HYDROXYCHLOROQUINE [Suspect]
     Active Substance: HYDROXYCHLOROQUINE
     Indication: SJOGREN^S SYNDROME
     Route: 065
  7. ALBUTEROL. [Concomitant]
     Active Substance: ALBUTEROL
  8. MISOPROSTOL. [Concomitant]
     Active Substance: MISOPROSTOL
  9. ROSUVASTATIN. [Concomitant]
     Active Substance: ROSUVASTATIN
  10. TERIPARATIDE [Concomitant]
     Active Substance: TERIPARATIDE
  11. HYDROXYCHLOROQUINE [Suspect]
     Active Substance: HYDROXYCHLOROQUINE
     Indication: RHEUMATOID ARTHRITIS
  12. SULINDAC. [Concomitant]
     Active Substance: SULINDAC
  13. CETIRIZINE [Concomitant]
     Active Substance: CETIRIZINE HYDROCHLORIDE
  14. RANITIDINE. [Concomitant]
     Active Substance: RANITIDINE

REACTIONS (11)
  - Staphylococcal infection [Unknown]
  - Pain [Unknown]
  - Swelling [Unknown]
  - Tenderness [Unknown]
  - Catheter site erythema [Unknown]
  - Subcutaneous emphysema [Unknown]
  - Emphysema [Unknown]
  - Joint range of motion decreased [Unknown]
  - Pyrexia [Unknown]
  - Gas gangrene [Unknown]
  - Necrotising fasciitis [Unknown]
